FAERS Safety Report 8308382-5 (Version None)
Quarter: 2012Q2

REPORT INFORMATION
  Report Type: 
  Country: None (occurrence: None)
  Receive Date: 20120419
  Receipt Date: 20120409
  Transmission Date: 20120825
  Serious: Yes (Other)
  Sender: FDA-Public Use
  Company Number: 2012P1013175

PATIENT
  Age: 65 Year
  Sex: Male

DRUGS (2)
  1. PHENYTOIN [Suspect]
     Indication: LUNG CANCER METASTATIC
  2. PHENYTOIN [Suspect]
     Indication: METASTASES TO CENTRAL NERVOUS SYSTEM

REACTIONS (1)
  - ERYTHEMA MULTIFORME [None]
